FAERS Safety Report 24637808 (Version 2)
Quarter: 2024Q4

REPORT INFORMATION
  Report Type: Report from Study
  Country: US (occurrence: US)
  Receive Date: 20241119
  Receipt Date: 20241216
  Transmission Date: 20250115
  Serious: Yes (Hospitalization, Other)
  Sender: ALEXION PHARMACEUTICALS
  Company Number: 202411USA008240US

PATIENT

DRUGS (1)
  1. BENRALIZUMAB [Suspect]
     Active Substance: BENRALIZUMAB
     Indication: Asthma
     Dosage: 30 MILLIGRAM, Q8W
     Route: 065

REACTIONS (5)
  - Pneumonia [Unknown]
  - Disease progression [Unknown]
  - Wheezing [Unknown]
  - Dyspnoea [Unknown]
  - Dizziness [Unknown]
